FAERS Safety Report 15632862 (Version 1)
Quarter: 2018Q4

REPORT INFORMATION
  Report Type: Spontaneous
  Country: FI (occurrence: FI)
  Receive Date: 20181119
  Receipt Date: 20181119
  Transmission Date: 20190205
  Serious: Yes (Other)
  Sender: FDA-Public Use
  Company Number: FI-CELGENEUS-FIN-20181103682

PATIENT
  Age: 75 Year
  Sex: Female

DRUGS (1)
  1. OTEZLA [Suspect]
     Active Substance: APREMILAST
     Indication: PSORIASIS
     Route: 048
     Dates: start: 20180921

REACTIONS (3)
  - Uterine haemorrhage [Unknown]
  - Gastrointestinal haemorrhage [Unknown]
  - Paraesthesia [Unknown]

NARRATIVE: CASE EVENT DATE: 201809
